FAERS Safety Report 9895704 (Version 2)
Quarter: 2014Q1

REPORT INFORMATION
  Report Type: Spontaneous
  Country: US (occurrence: US)
  Receive Date: 20140213
  Receipt Date: 20140213
  Transmission Date: 20141002
  Serious: Yes (Other)
  Sender: FDA-Public Use
  Company Number: US-BRISTOL-MYERS SQUIBB COMPANY-18967349

PATIENT
  Age: 44 Year
  Sex: Female
  Weight: 68.03 kg

DRUGS (3)
  1. ORENCIA [Suspect]
     Indication: RHEUMATOID ARTHRITIS
     Route: 042
     Dates: start: 201205
  2. ABATACEPT SUBQ INJECTION 125MG/ML [Suspect]
     Route: 058
     Dates: start: 201304
  3. MACROBID [Concomitant]

REACTIONS (3)
  - Diverticulitis [Recovered/Resolved]
  - Drug ineffective [Unknown]
  - Medication error [Unknown]
